FAERS Safety Report 4286082-9 (Version None)
Quarter: 2004Q1

REPORT INFORMATION
  Report Type: 
  Country: None (occurrence: None)
  Receive Date: 20040202
  Receipt Date: 20040202
  Transmission Date: 20041129
  Serious: No
  Sender: FDA-Public Use
  Company Number: None

PATIENT
  Sex: Male
  Weight: 82 kg

DRUGS (14)
  1. FENTANYL [Suspect]
     Indication: AGITATION
     Dosage: 100MCG, 200 MCG PRN IV
     Route: 042
     Dates: start: 20030904, end: 20030909
  2. ATENOLOL [Concomitant]
  3. CEFEPIME [Concomitant]
  4. FUROSEMIDE [Concomitant]
  5. IPRATROPIUM BROMIDE [Concomitant]
  6. LACTULOSE [Concomitant]
  7. LORAZEPAM [Concomitant]
  8. METHYLPREDNISOLONE [Concomitant]
  9. NYSTATIN [Concomitant]
  10. RANITIDINE [Concomitant]
  11. VANCOMYCIN [Concomitant]
  12. OCTREOTIDE GH [Concomitant]
  13. INSULIN GH [Concomitant]
  14. NOREPINEPHRINE [Concomitant]

REACTIONS (4)
  - BLOOD PRESSURE DIASTOLIC DECREASED [None]
  - OXYGEN SATURATION DECREASED [None]
  - POST PROCEDURAL COMPLICATION [None]
  - POSTOPERATIVE INFECTION [None]
